FAERS Safety Report 10578925 (Version 1)
Quarter: 2014Q4

REPORT INFORMATION
  Report Type: Spontaneous
  Country: US (occurrence: US)
  Receive Date: 20141112
  Receipt Date: 20141112
  Transmission Date: 20150529
  Serious: No
  Sender: FDA-Public Use
  Company Number: US-PFIZER INC-2014308746

PATIENT
  Sex: Female

DRUGS (2)
  1. ADVIL [Suspect]
     Active Substance: IBUPROFEN
     Indication: OSTEOARTHRITIS
     Dosage: THREE DOSE FORM, FOUR TIMES A DAY (EVERY 6 HOURS)
  2. ADVIL [Suspect]
     Active Substance: IBUPROFEN
     Indication: NERVOUS SYSTEM DISORDER

REACTIONS (3)
  - Intentional product misuse [Unknown]
  - Heart rate irregular [Unknown]
  - Gastric disorder [Unknown]
